FAERS Safety Report 4277455-9 (Version None)
Quarter: 2004Q1

REPORT INFORMATION
  Report Type: 
  Country: None (occurrence: None)
  Receive Date: 20040122
  Receipt Date: 20031015
  Transmission Date: 20041129
  Serious: Yes (Disabling)
  Sender: FDA-Public Use
  Company Number: US-ROCHE-349531

PATIENT
  Age: 16 Year
  Sex: Male
  Weight: 55.9 kg

DRUGS (2)
  1. FUZEON [Suspect]
     Indication: HIV INFECTION
     Route: 030
     Dates: start: 20031009, end: 20031015
  2. PREDNISONE [Concomitant]

REACTIONS (5)
  - DIFFICULTY IN WALKING [None]
  - INJECTION SITE CELLULITIS [None]
  - INJECTION SITE ERYTHEMA [None]
  - INJECTION SITE PAIN [None]
  - INJECTION SITE WARMTH [None]
